FAERS Safety Report 4743574-3 (Version None)
Quarter: 2005Q3

REPORT INFORMATION
  Report Type: 
  Country: None (occurrence: None)
  Receive Date: 20050809
  Receipt Date: 20050729
  Transmission Date: 20060218
  Serious: Yes (Death)
  Sender: FDA-Public Use
  Company Number: 2005FR-00169

PATIENT
  Age: 84 Year
  Sex: Female

DRUGS (7)
  1. ASPIRIN [Suspect]
     Dosage: 75MG, ORAL
     Route: 048
     Dates: start: 20040915, end: 20040920
  2. CLEXANE [Concomitant]
  3. FUROSEMIDE [Concomitant]
  4. SINEMET [Concomitant]
  5. LACTULOSE [Concomitant]
  6. SENNA [Concomitant]
  7. CYCLIZINE [Concomitant]

REACTIONS (1)
  - GASTROINTESTINAL HAEMORRHAGE [None]
